FAERS Safety Report 5565162-1 (Version None)
Quarter: 2007Q4

REPORT INFORMATION
  Report Type: 
  Country: None (occurrence: None)
  Receive Date: 20071213
  Receipt Date: 20071213
  Transmission Date: 20080405
  Serious: Yes (Hospitalization)
  Sender: FDA-Public Use
  Company Number: None

PATIENT
  Age: 40 Year
  Sex: Male
  Weight: 99.7913 kg

DRUGS (1)
  1. CHANTIX [Suspect]
     Indication: SMOKING CESSATION THERAPY
     Dosage: 1 TABLET A DAY PO
     Route: 048
     Dates: start: 20070808, end: 20071008

REACTIONS (5)
  - DELUSION [None]
  - DEPENDENCE [None]
  - DEPRESSION [None]
  - DRUG ABUSE [None]
  - SUICIDAL IDEATION [None]
